FAERS Safety Report 7391257-6 (Version None)
Quarter: 2011Q2

REPORT INFORMATION
  Report Type: 
  Country: None (occurrence: None)
  Receive Date: 20110404
  Receipt Date: 20110307
  Transmission Date: 20111010
  Serious: No
  Sender: FDA-Public Use
  Company Number: US-B.I. PHARMACEUTICALS,INC./RIDGEFIELD-2011-BP-07117BP

PATIENT
  Age: 78 Year
  Sex: Female

DRUGS (9)
  1. PROTONIX [Concomitant]
     Indication: GASTRIC DISORDER
     Dates: start: 20101001
  2. METOPROLOL [Concomitant]
     Indication: HYPERTENSION
     Dosage: 100 MG
     Route: 048
  3. CRESTOR [Concomitant]
     Indication: BLOOD CHOLESTEROL INCREASED
     Dosage: 5 MG
     Route: 048
     Dates: start: 20080101
  4. MULTAQ [Concomitant]
     Dosage: 800 MG
     Route: 048
     Dates: start: 20101001
  5. TRILIPIX [Concomitant]
     Indication: BLOOD CHOLESTEROL INCREASED
     Dosage: 135 MG
     Route: 048
     Dates: start: 20080101
  6. AMBIEN [Concomitant]
     Indication: INSOMNIA
     Dosage: 5 MG
     Route: 048
  7. ASPIRIN [Concomitant]
     Indication: ATRIAL FIBRILLATION
     Dosage: 81 MG
     Route: 048
  8. NIFEDIPINE [Concomitant]
     Indication: HYPERTENSION
     Dosage: 30 MG
     Route: 048
     Dates: start: 20080101
  9. PRADAXA [Suspect]
     Indication: ATRIAL FIBRILLATION
     Dosage: 300 MG
     Route: 048
     Dates: start: 20110304

REACTIONS (2)
  - ABDOMINAL PAIN UPPER [None]
  - ATRIAL FIBRILLATION [None]
